FAERS Safety Report 12178407 (Version 3)
Quarter: 2018Q2

REPORT INFORMATION
  Report Type: Spontaneous
  Country: US (occurrence: US)
  Receive Date: 20160314
  Receipt Date: 20180515
  Transmission Date: 20180711
  Serious: No
  Sender: FDA-Public Use
  Company Number: US-SA-2015SA216366

PATIENT
  Age: 73 Year
  Sex: Female

DRUGS (6)
  1. SOLOSTAR [Concomitant]
     Active Substance: DEVICE
     Indication: TYPE 2 DIABETES MELLITUS
     Dates: start: 201511
  2. TOUJEO [Suspect]
     Active Substance: INSULIN GLARGINE
     Indication: TYPE 2 DIABETES MELLITUS
     Dosage: DOSE: 25 UNITS IN THE MORNING AND 30 UNITS IN THE EVENING
     Route: 065
     Dates: start: 201605
  3. TOUJEO [Suspect]
     Active Substance: INSULIN GLARGINE
     Indication: TYPE 2 DIABETES MELLITUS
     Dosage: 30 UNITS IN THE MORNING AND 35 UNITS IN THE EVENING
     Route: 065
     Dates: start: 201511
  4. LEVEMIR [Concomitant]
     Active Substance: INSULIN DETEMIR
     Indication: TYPE 2 DIABETES MELLITUS
     Dosage: DOSE: 30 AT DAY AND 35 AT NIGHT (UNIT UNKNOWN)
     Dates: start: 2013, end: 2015
  5. FLEXPEN [Concomitant]
     Active Substance: UNSPECIFIED INGREDIENT
     Indication: TYPE 2 DIABETES MELLITUS
     Dates: start: 2013, end: 2015
  6. CORTISONE [Concomitant]
     Active Substance: CORTISONE\HYDROCORTISONE
     Indication: PAIN
     Dates: start: 201511

REACTIONS (6)
  - Chills [Unknown]
  - Product use issue [Unknown]
  - Expired product administered [Unknown]
  - Muscular weakness [Unknown]
  - Blood glucose decreased [Unknown]
  - Blood glucose increased [Unknown]
